FAERS Safety Report 13989928 (Version 1)
Quarter: 2017Q3

REPORT INFORMATION
  Report Type: Spontaneous
  Country: US (occurrence: None)
  Receive Date: 20170920
  Receipt Date: 20170920
  Transmission Date: 20171128
  Serious: Yes (Death, Hospitalization)
  Sender: FDA-Public Use
  Company Number: None

PATIENT
  Age: 46 Year
  Sex: Female
  Weight: 104.9 kg

DRUGS (1)
  1. GEMCITABINE HYDROCHLORIDE. [Suspect]
     Active Substance: GEMCITABINE HYDROCHLORIDE
     Dates: end: 20170827

REACTIONS (16)
  - Lactic acidosis [None]
  - Abdominal pain [None]
  - Metabolic acidosis [None]
  - Peritonitis [None]
  - Peritoneal haemorrhage [None]
  - Acute kidney injury [None]
  - Neutropenia [None]
  - Deep vein thrombosis [None]
  - Sepsis [None]
  - Generalised oedema [None]
  - Axillary vein thrombosis [None]
  - Gait disturbance [None]
  - Asthenia [None]
  - Ascites [None]
  - Thrombocytopenia [None]
  - Anaemia [None]

NARRATIVE: CASE EVENT DATE: 20170901
